FAERS Safety Report 6613086-0 (Version None)
Quarter: 2010Q1

REPORT INFORMATION
  Report Type: 
  Country: None (occurrence: None)
  Receive Date: 20100223
  Receipt Date: 20100210
  Transmission Date: 20100710
  Serious: Yes (Death)
  Sender: FDA-Public Use
  Company Number: 1000010711

PATIENT
  Age: 48 Year
  Sex: Male

DRUGS (2)
  1. CITALOPRAM HYDROBROMIDE [Suspect]
  2. RISPERDAL CONSTA [Suspect]
     Indication: SCHIZOPHRENIA
     Dosage: 2.6786 MG (37.5 MG, 1 IN 2 WK), INTRAMUSCULAR
     Route: 030
     Dates: start: 20080301, end: 20090425

REACTIONS (2)
  - ASPHYXIA [None]
  - COMPLETED SUICIDE [None]
